FAERS Safety Report 10217248 (Version 1)
Quarter: 2014Q2

REPORT INFORMATION
  Report Type: Spontaneous
  Country: US (occurrence: US)
  Receive Date: 20140604
  Receipt Date: 20140604
  Transmission Date: 20141212
  Serious: Yes (Hospitalization)
  Sender: FDA-Public Use
  Company Number: US-PFIZER INC-2014149931

PATIENT
  Age: 68 Year
  Sex: Male
  Weight: 111.56 kg

DRUGS (3)
  1. SUTENT [Suspect]
     Indication: RENAL CANCER
     Dosage: UNK, CYCLIC (ON THERAPY FOR 28 DAYS AND THEN OFF THERAPY FOR 14 DAYS)
     Route: 048
     Dates: start: 2013, end: 20140517
  2. IBUPROFEN [Concomitant]
     Indication: TUMOUR PAIN
     Dosage: 500 MG, AS NEEDED
  3. OXYCODONE [Concomitant]
     Indication: TUMOUR PAIN
     Dosage: 5 MG, AS NEEDED

REACTIONS (2)
  - Dizziness [Recovering/Resolving]
  - Nausea [Recovered/Resolved]
